FAERS Safety Report 17473304 (Version 4)
Quarter: 2020Q3

REPORT INFORMATION
  Report Type: Report from Study
  Country: FR (occurrence: FR)
  Receive Date: 20200228
  Receipt Date: 20200826
  Transmission Date: 20201102
  Serious: Yes (Hospitalization)
  Sender: FDA-Public Use
  Company Number: FR-ROCHE-2549459

PATIENT
  Age: 81 Year
  Sex: Male
  Weight: 73 kg

DRUGS (1)
  1. VEMURAFENIB. [Suspect]
     Active Substance: VEMURAFENIB
     Indication: NEOPLASM MALIGNANT
     Dosage: DATE OF LAST DOSE OF VEMURAFENIB ADMINISTRATION PRIOR TO SAE : 09/FEB/2020
     Route: 048
     Dates: start: 20170828

REACTIONS (2)
  - Haematuria [Recovered/Resolved]
  - Cystitis radiation [Recovered/Resolved]

NARRATIVE: CASE EVENT DATE: 20200207
